FAERS Safety Report 12153480 (Version 1)
Quarter: 2016Q1

REPORT INFORMATION
  Report Type: Spontaneous
  Country: CH (occurrence: CH)
  Receive Date: 20160306
  Receipt Date: 20160306
  Transmission Date: 20160526
  Serious: Yes (Hospitalization)
  Sender: FDA-Public Use
  Company Number: CH-ELI_LILLY_AND_COMPANY-CH201602008969

PATIENT
  Age: 63 Year
  Sex: Male

DRUGS (17)
  1. ZYPREXA [Suspect]
     Active Substance: OLANZAPINE
     Indication: PRODUCT USED FOR UNKNOWN INDICATION
     Dosage: 5 MG, QD
     Route: 065
     Dates: start: 20150623, end: 20150624
  2. ZYPREXA [Interacting]
     Active Substance: OLANZAPINE
     Dosage: 10, UNKNOWN
     Dates: start: 20150710, end: 20150716
  3. REMERON [Interacting]
     Active Substance: MIRTAZAPINE
     Indication: PRODUCT USED FOR UNKNOWN INDICATION
     Dosage: 15 MG, QD
     Route: 065
     Dates: start: 20150622, end: 20150628
  4. TEMESTA                            /00273201/ [Concomitant]
     Active Substance: LORAZEPAM
     Dosage: 1.5, UNKNOWN
     Route: 065
     Dates: start: 20150725, end: 20150802
  5. ZYPREXA [Interacting]
     Active Substance: OLANZAPINE
     Dosage: 7.5 MG, QD
     Route: 065
     Dates: start: 20150811, end: 20150812
  6. VENLAFAXIN [Interacting]
     Active Substance: VENLAFAXINE HYDROCHLORIDE
     Indication: PRODUCT USED FOR UNKNOWN INDICATION
     Dosage: 37.5 MG, QD
     Route: 065
     Dates: start: 20150810, end: 20150817
  7. TEMESTA                            /00273201/ [Concomitant]
     Active Substance: LORAZEPAM
     Dosage: 1, UNKNOWN
     Route: 065
     Dates: start: 20150803, end: 20150810
  8. TEMESTA                            /00273201/ [Concomitant]
     Active Substance: LORAZEPAM
     Dosage: 1.5, UNKNOWN
     Route: 065
     Dates: start: 20150923
  9. ZYPREXA [Interacting]
     Active Substance: OLANZAPINE
     Dosage: 15, UNK
     Route: 065
     Dates: start: 20150625, end: 20150709
  10. ZYPREXA [Interacting]
     Active Substance: OLANZAPINE
     Dosage: 7.5, UNKNOWN
     Dates: start: 20150717, end: 20150726
  11. TEMESTA                            /00273201/ [Concomitant]
     Active Substance: LORAZEPAM
     Dosage: 2.5-4G/DAY
     Route: 065
     Dates: start: 20150811, end: 20150922
  12. ZYPREXA [Interacting]
     Active Substance: OLANZAPINE
     Dosage: 15, UNKNOWN
     Route: 065
     Dates: start: 20150813, end: 20150817
  13. NEXIUM [Concomitant]
     Active Substance: ESOMEPRAZOLE MAGNESIUM
     Dosage: 40 MG, UNKNOWN
     Route: 065
     Dates: start: 20150622
  14. REMERON [Interacting]
     Active Substance: MIRTAZAPINE
     Dosage: 30 MG, QD
     Route: 065
     Dates: start: 20150629, end: 20150817
  15. TEMESTA                            /00273201/ [Concomitant]
     Active Substance: LORAZEPAM
     Dosage: 2, UNKNOWN
     Route: 065
     Dates: start: 20150721, end: 20150724
  16. ZYPREXA [Interacting]
     Active Substance: OLANZAPINE
     Dosage: 5 MG, QD
     Route: 065
     Dates: start: 20150727, end: 20150810
  17. TEMESTA                            /00273201/ [Concomitant]
     Active Substance: LORAZEPAM
     Dosage: 2.5 MG, QD
     Route: 065
     Dates: start: 20150622, end: 20150720

REACTIONS (9)
  - Anxiety [Recovered/Resolved]
  - Depressive symptom [Unknown]
  - Abnormal behaviour [Recovered/Resolved]
  - Hallucination [Recovered/Resolved]
  - Apathy [Unknown]
  - Drug interaction [Unknown]
  - Catatonia [Recovered/Resolved]
  - Tension [Recovered/Resolved]
  - Altered state of consciousness [Recovered/Resolved]

NARRATIVE: CASE EVENT DATE: 20150808
